FAERS Safety Report 22003847 (Version 2)
Quarter: 2023Q1

REPORT INFORMATION
  Report Type: Spontaneous
  Country: US (occurrence: None)
  Receive Date: 20230217
  Receipt Date: 20230327
  Transmission Date: 20230417
  Serious: Yes (Death, Hospitalization)
  Sender: FDA-Public Use
  Company Number: US-FARMAPROD-202302-0334

PATIENT
  Age: 69 Year
  Sex: Male

DRUGS (38)
  1. OXERVATE [Suspect]
     Active Substance: CENEGERMIN-BKBJ
     Indication: Neurotrophic keratopathy
     Route: 047
     Dates: start: 20221228
  2. DILAUDID [Concomitant]
     Active Substance: HYDROMORPHONE HYDROCHLORIDE
     Dosage: SYRINGE
  3. OXYGEN [Concomitant]
     Active Substance: OXYGEN
  4. HEPARIN SODIUM [Concomitant]
     Active Substance: HEPARIN SODIUM
     Dosage: SYRINGE
  5. ERYTHROMYCIN [Concomitant]
     Active Substance: ERYTHROMYCIN
  6. REFRESH TEARS [Concomitant]
     Active Substance: CARBOXYMETHYLCELLULOSE SODIUM
  7. TRAVATAN Z [Concomitant]
     Active Substance: TRAVOPROST
  8. MOXIFLOXACIN [Concomitant]
     Active Substance: MOXIFLOXACIN
  9. SIMETHICONE (DIMETHICONE) [Concomitant]
     Active Substance: DIMETHICONE
  10. SODIUM CHLORIDE [Concomitant]
     Active Substance: SODIUM CHLORIDE
  11. VITAMIN B12 [Concomitant]
     Active Substance: CYANOCOBALAMIN
  12. MAGNESIUM [Concomitant]
     Active Substance: MAGNESIUM
  13. VITAMIN D3 [Concomitant]
     Active Substance: CHOLECALCIFEROL
  14. BIOTIN [Concomitant]
     Active Substance: BIOTIN
  15. VITAMINS [Concomitant]
     Active Substance: VITAMINS
  16. WARFARIN SODIUM [Concomitant]
     Active Substance: WARFARIN SODIUM
  17. MONTELUKAST SODIUM [Concomitant]
     Active Substance: MONTELUKAST SODIUM
  18. ZYRTEC [Concomitant]
     Active Substance: CETIRIZINE HYDROCHLORIDE
  19. LIPITOR [Concomitant]
     Active Substance: ATORVASTATIN CALCIUM
  20. NORTRIPTYLINE HYDROCHLORIDE [Concomitant]
     Active Substance: NORTRIPTYLINE HYDROCHLORIDE
  21. GABAPENTIN [Concomitant]
     Active Substance: GABAPENTIN
  22. COLACE [Concomitant]
     Active Substance: DOCUSATE SODIUM
  23. AMLODIPINE BESYLATE [Concomitant]
     Active Substance: AMLODIPINE BESYLATE
  24. COREG [Concomitant]
     Active Substance: CARVEDILOL
  25. ALFUZOSIN HYDROCHLORIDE [Concomitant]
     Active Substance: ALFUZOSIN HYDROCHLORIDE
     Dosage: EXTENDED RELEASE FOR 24 HOURS
  26. SACCHAROMYCES CEREVISIAE [Concomitant]
     Active Substance: SACCHAROMYCES CEREVISIAE
  27. OMEPRAZOLE [Concomitant]
     Active Substance: OMEPRAZOLE
  28. BACTRIM DS [Concomitant]
     Active Substance: SULFAMETHOXAZOLE\TRIMETHOPRIM
     Dosage: 800-160 MG
  29. AZITHROMYCIN [Concomitant]
     Active Substance: AZITHROMYCIN
  30. PREDNISONE [Concomitant]
     Active Substance: PREDNISONE
  31. RAPAMUNE [Concomitant]
     Active Substance: SIROLIMUS
  32. PROGRAF [Concomitant]
     Active Substance: TACROLIMUS
  33. BLOOD SERUM TEARS [Concomitant]
  34. LATANOPROST [Concomitant]
     Active Substance: LATANOPROST
  35. ERYTHROMYCIN [Concomitant]
     Active Substance: ERYTHROMYCIN
  36. AMLODIPINE BESYLATE [Concomitant]
     Active Substance: AMLODIPINE BESYLATE
  37. TACROLIMUS [Concomitant]
     Active Substance: TACROLIMUS
  38. JOINT CARTILAGE SUPPLEMENT [Concomitant]

REACTIONS (2)
  - Death [Fatal]
  - Surgery [Unknown]

NARRATIVE: CASE EVENT DATE: 20230222
